FAERS Safety Report 22002709 (Version 4)
Quarter: 2023Q4

REPORT INFORMATION
  Report Type: Report from Study
  Country: JP (occurrence: JP)
  Receive Date: 20230217
  Receipt Date: 20231202
  Transmission Date: 20240110
  Serious: Yes (Hospitalization, Other)
  Sender: FDA-Public Use
  Company Number: JP-002147023-NVSJ2023JP003118

PATIENT
  Age: 24 Year
  Sex: Male

DRUGS (20)
  1. SCEMBLIX [Suspect]
     Active Substance: ASCIMINIB HYDROCHLORIDE
     Indication: Chronic myeloid leukaemia
     Dosage: 40 MG
     Route: 048
     Dates: start: 20221115, end: 20230105
  2. SCEMBLIX [Suspect]
     Active Substance: ASCIMINIB HYDROCHLORIDE
     Dosage: 20 MG, BID
     Route: 048
     Dates: start: 20230117
  3. PROGRAF [Concomitant]
     Active Substance: TACROLIMUS
     Indication: Product used for unknown indication
     Dosage: 0.025 MG, QD
     Route: 065
     Dates: start: 20230502
  4. CERTICAN [Concomitant]
     Active Substance: EVEROLIMUS
     Indication: Product used for unknown indication
     Dosage: 0.25 MG, BID
     Route: 065
     Dates: start: 20230502
  5. DIART [Concomitant]
     Indication: Product used for unknown indication
     Dosage: 7.5 MG, QD(AFTER BREAKFAST)
     Route: 065
     Dates: start: 20230502
  6. LASIX [Concomitant]
     Active Substance: FUROSEMIDE
     Indication: Product used for unknown indication
     Dosage: 10 MG, QD(AFTER BREAKFAST)
     Route: 065
     Dates: start: 20230502
  7. SPIRONOLACTONE [Concomitant]
     Active Substance: SPIRONOLACTONE
     Indication: Product used for unknown indication
     Dosage: 37.5 MG, QD
     Route: 065
     Dates: start: 20230502
  8. SAMSCA [Concomitant]
     Active Substance: TOLVAPTAN
     Indication: Product used for unknown indication
     Dosage: 15 MG, QD
     Route: 065
     Dates: start: 20230502
  9. CILNIDIPINE [Concomitant]
     Active Substance: CILNIDIPINE
     Indication: Product used for unknown indication
     Dosage: 2.5 MG(EVERY OTHER DAY)
     Route: 065
     Dates: start: 20230502
  10. DAPAGLIFLOZIN [Concomitant]
     Active Substance: DAPAGLIFLOZIN
     Indication: Product used for unknown indication
     Dosage: 10 MG, QD
     Route: 065
     Dates: start: 20230502
  11. VILDAGLIPTIN [Concomitant]
     Active Substance: VILDAGLIPTIN
     Indication: Product used for unknown indication
     Dosage: 50 MG, QD
     Route: 065
     Dates: start: 20230502
  12. ASPIRIN\DIHYDROXYALUMINUM AMINOACETATE ANHYDROUS\MAGNESIUM CARBONATE [Concomitant]
     Active Substance: ASPIRIN\DIHYDROXYALUMINUM AMINOACETATE ANHYDROUS\MAGNESIUM CARBONATE
     Indication: Product used for unknown indication
     Dosage: 1 DOSAGE FORM, QD
     Route: 065
     Dates: start: 20230502
  13. FEBUXOSTAT [Concomitant]
     Active Substance: FEBUXOSTAT
     Indication: Product used for unknown indication
     Dosage: 60 MG, QD
     Route: 065
     Dates: start: 20230502
  14. ISOSORBIDE MONONITRATE [Concomitant]
     Active Substance: ISOSORBIDE MONONITRATE
     Indication: Product used for unknown indication
     Dosage: 20 MG, BID
     Route: 065
     Dates: start: 20230502
  15. NICORANDIL [Concomitant]
     Active Substance: NICORANDIL
     Indication: Product used for unknown indication
     Dosage: 5 MG, TID
     Route: 065
     Dates: start: 20230502
  16. MIGLITOL [Concomitant]
     Active Substance: MIGLITOL
     Indication: Product used for unknown indication
     Dosage: 2 DOSAGE FORM (0.5 TABLETS BEFORE BREAKFAST, 0.5 TABLETS BEFORE LUNCH, 1 TABLET BEFORE DINNER)
     Route: 065
     Dates: start: 20230502
  17. LANSOPRAZOLE [Concomitant]
     Active Substance: LANSOPRAZOLE
     Indication: Product used for unknown indication
     Dosage: 15 MG, QD
     Route: 065
     Dates: start: 20230502
  18. MAGNESIUM OXIDE [Concomitant]
     Active Substance: MAGNESIUM OXIDE
     Indication: Product used for unknown indication
     Dosage: 330 MG, TID (AFTER BREAKFAST, LUNCH, AND DINNER)
     Route: 065
     Dates: start: 20230502
  19. PREDONINE [Concomitant]
     Active Substance: PREDNISOLONE
     Indication: Product used for unknown indication
     Dosage: 5 MG, BID (AFTER BREAKFAST AND DINNER)
     Route: 065
     Dates: start: 20230502
  20. ATORVASTATIN [Concomitant]
     Active Substance: ATORVASTATIN
     Indication: Product used for unknown indication
     Dosage: 5 MG, QD
     Route: 065
     Dates: start: 20230502

REACTIONS (6)
  - Cardiac failure acute [Recovering/Resolving]
  - Pleural effusion [Unknown]
  - Gastroenteritis viral [Recovering/Resolving]
  - Diarrhoea [Recovering/Resolving]
  - Pyrexia [Recovering/Resolving]
  - Lymphocyte count decreased [Unknown]

NARRATIVE: CASE EVENT DATE: 20230104
